FAERS Safety Report 9221126 (Version 1)
Quarter: 2013Q2

REPORT INFORMATION
  Report Type: Spontaneous
  Country: DE (occurrence: DE)
  Receive Date: 20130409
  Receipt Date: 20130409
  Transmission Date: 20140414
  Serious: Yes (Other)
  Sender: FDA-Public Use
  Company Number: DE-AMGEN-DEUSP2013024117

PATIENT
  Age: 76 Year
  Sex: Male
  Weight: 72 kg

DRUGS (3)
  1. VECTIBIX [Suspect]
     Indication: COLON CANCER
     Dosage: 400 MG, EVERY 14 DAYS
     Route: 042
     Dates: start: 20130218, end: 20130218
  2. IRINOTECAN [Suspect]
     Indication: COLON CANCER
     Dosage: 150 MG, EVERY 7 DAYS
     Route: 042
     Dates: start: 20130218, end: 20130225
  3. 5 FU [Concomitant]
     Indication: COLON CANCER
     Dosage: 3800 MG, EVERY 7 DAYS
     Route: 042
     Dates: start: 20130218, end: 20130225

REACTIONS (1)
  - Stomatitis [Not Recovered/Not Resolved]
